FAERS Safety Report 17976228 (Version 2)
Quarter: 2020Q3

REPORT INFORMATION
  Report Type: Report from Study
  Country: AR (occurrence: AR)
  Receive Date: 20200702
  Receipt Date: 20200710
  Transmission Date: 20201103
  Serious: Yes (Hospitalization, Other)
  Sender: FDA-Public Use
  Company Number: AR-ALEXION PHARMACEUTICALS INC-A202007210

PATIENT
  Age: 43 Year
  Sex: Female
  Weight: 99 kg

DRUGS (2)
  1. SOLIRIS [Suspect]
     Active Substance: ECULIZUMAB
     Dosage: 300 MG, Q2W
     Route: 042
     Dates: start: 20150514
  2. SOLIRIS [Suspect]
     Active Substance: ECULIZUMAB
     Indication: PAROXYSMAL NOCTURNAL HAEMOGLOBINURIA
     Dosage: EVERY 15 DAYS
     Route: 065
     Dates: start: 2014

REACTIONS (9)
  - Autoimmune haemolytic anaemia [Recovered/Resolved]
  - Blood bilirubin increased [Unknown]
  - Hypoglycaemia [Unknown]
  - Reticulocyte count increased [Unknown]
  - Bilirubin conjugated increased [Unknown]
  - Counterfeit product administered [Unknown]
  - Blood lactate dehydrogenase increased [Unknown]
  - Haemolysis [Recovered/Resolved]
  - Blood urea decreased [Unknown]

NARRATIVE: CASE EVENT DATE: 20200514
